FAERS Safety Report 20966601 (Version 1)
Quarter: 2022Q2

REPORT INFORMATION
  Report Type: Spontaneous
  Country: US (occurrence: None)
  Receive Date: 20220615
  Receipt Date: 20220615
  Transmission Date: 20220721
  Serious: No
  Sender: FDA-Public Use
  Company Number: None

PATIENT
  Age: 43 Year
  Sex: Female

DRUGS (1)
  1. LYNPARZA [Suspect]
     Active Substance: OLAPARIB
     Indication: Breast cancer
     Dosage: OTHER QUANTITY : 300/150 MG;?OTHER FREQUENCY : QAM + QPM;?
     Dates: start: 20220504

REACTIONS (2)
  - Hallucination, auditory [None]
  - Treatment noncompliance [None]

NARRATIVE: CASE EVENT DATE: 20220615
